FAERS Safety Report 12839555 (Version 1)
Quarter: 2016Q4

REPORT INFORMATION
  Report Type: Spontaneous
  Country: US (occurrence: US)
  Receive Date: 20161011
  Receipt Date: 20161011
  Transmission Date: 20170207
  Serious: Yes (Other)
  Sender: FDA-Public Use
  Company Number: None

PATIENT
  Age: 61 Year
  Sex: Male
  Weight: 130.5 kg

DRUGS (3)
  1. VITAMIN E [Concomitant]
     Active Substance: .ALPHA.-TOCOPHEROL
  2. ALLOPURINOL TABS 300MG [Suspect]
     Active Substance: ALLOPURINOL
     Indication: GOUT
     Dosage: OTHER TWICE A DAY ORAL  ??1 TABLET
     Route: 048
     Dates: start: 20160301, end: 20161011
  3. FISH OIL [Concomitant]
     Active Substance: FISH OIL

REACTIONS (5)
  - Product physical issue [None]
  - Manufacturing issue [None]
  - Medication residue present [None]
  - Accidental exposure to product [None]
  - Product quality issue [None]

NARRATIVE: CASE EVENT DATE: 20161001
